FAERS Safety Report 7237920-9 (Version None)
Quarter: 2011Q1

REPORT INFORMATION
  Report Type: 
  Country: None (occurrence: None)
  Receive Date: 20110119
  Receipt Date: 20110119
  Transmission Date: 20110831
  Serious: Yes (Hospitalization)
  Sender: FDA-Public Use
  Company Number: None

PATIENT
  Age: 46 Year
  Sex: Male
  Weight: 145.8 kg

DRUGS (2)
  1. VANCOMYCIN [Suspect]
     Indication: RASH
     Dosage: 1.5 GM TID IV
     Route: 042
     Dates: start: 20100913, end: 20100920
  2. PIPERACILLIN AND TAZOBACTAM [Suspect]
     Dosage: 3.375 GM TID IV
     Route: 042
     Dates: start: 20100913, end: 20100920

REACTIONS (2)
  - RASH PRURITIC [None]
  - URTICARIA [None]
